FAERS Safety Report 9944676 (Version 1)
Quarter: 2014Q1

REPORT INFORMATION
  Report Type: Report from Study
  Country: US (occurrence: US)
  Receive Date: 20140303
  Receipt Date: 20140303
  Transmission Date: 20141002
  Serious: No
  Sender: FDA-Public Use
  Company Number: US-ABBVIE-13P-163-1054448-00

PATIENT
  Age: 52 Year
  Sex: Female
  Weight: 62.65 kg

DRUGS (13)
  1. HUMIRA [Suspect]
     Indication: RHEUMATOID ARTHRITIS
     Dates: start: 201206
  2. METHOTREXATE [Concomitant]
     Indication: RHEUMATOID ARTHRITIS
  3. METHADONE [Concomitant]
     Indication: POSTOPERATIVE CARE
  4. PROPRANOLOL [Concomitant]
     Indication: TREMOR
  5. CLARITIN [Concomitant]
     Indication: HYPERSENSITIVITY
  6. ZOLOFT [Concomitant]
     Indication: DEPRESSION
  7. TEMAZEPAM [Concomitant]
     Indication: SLEEP DISORDER
  8. HCTZ [Concomitant]
     Indication: NEPHROLITHIASIS
  9. FOLIC ACID [Concomitant]
     Indication: VITAMIN SUPPLEMENTATION
  10. ASPIRIN [Concomitant]
     Indication: CARDIOVASCULAR EVENT PROPHYLAXIS
  11. ONE A DAY VITAMIN [Concomitant]
     Indication: VITAMIN SUPPLEMENTATION
  12. VITAMIN D [Concomitant]
     Indication: VITAMIN SUPPLEMENTATION
  13. NORCO [Concomitant]
     Indication: PAIN

REACTIONS (8)
  - Eczema [Not Recovered/Not Resolved]
  - Herpes zoster [Recovered/Resolved]
  - Tooth disorder [Recovered/Resolved]
  - Tooth fracture [Recovered/Resolved]
  - Gingival pain [Recovered/Resolved]
  - Gingival swelling [Recovered/Resolved]
  - Rash erythematous [Not Recovered/Not Resolved]
  - Rash [Not Recovered/Not Resolved]
